FAERS Safety Report 15576363 (Version 3)
Quarter: 2018Q4

REPORT INFORMATION
  Report Type: Spontaneous
  Country: BR (occurrence: BR)
  Receive Date: 20181101
  Receipt Date: 20181213
  Transmission Date: 20190205
  Serious: Yes (Other)
  Sender: FDA-Public Use
  Company Number: PHHY2018BR143684

PATIENT
  Age: 72 Year
  Sex: Female
  Weight: 65 kg

DRUGS (2)
  1. SYSTANE ULTRA [Suspect]
     Active Substance: POLYETHYLENE GLYCOL 400\PROPYLENE GLYCOL
     Indication: OCULAR DISCOMFORT
  2. SYSTANE ULTRA [Suspect]
     Active Substance: POLYETHYLENE GLYCOL 400\PROPYLENE GLYCOL
     Indication: FOREIGN BODY SENSATION IN EYES
     Route: 047

REACTIONS (14)
  - Eye discharge [Recovered/Resolved]
  - Fall [Recovering/Resolving]
  - Glycosylated haemoglobin increased [Recovering/Resolving]
  - Drug ineffective [Recovering/Resolving]
  - Diplopia [Recovering/Resolving]
  - Ear infection [Recovering/Resolving]
  - Product leakage [Unknown]
  - Dacryostenosis acquired [Recovering/Resolving]
  - Product packaging quantity issue [Unknown]
  - Cerebrovascular accident [Recovering/Resolving]
  - Hypersensitivity [Recovering/Resolving]
  - Malaise [Recovering/Resolving]
  - Ocular discomfort [Recovering/Resolving]
  - Syncope [Recovering/Resolving]

NARRATIVE: CASE EVENT DATE: 20170412
